FAERS Safety Report 13494790 (Version 1)
Quarter: 2017Q2

REPORT INFORMATION
  Report Type: Spontaneous
  Country: US (occurrence: US)
  Receive Date: 20170428
  Receipt Date: 20170428
  Transmission Date: 20170830
  Serious: No
  Sender: FDA-Public Use
  Company Number: US-PFIZER INC-2017181884

PATIENT
  Age: 84 Year
  Sex: Female

DRUGS (4)
  1. SILVER SULFADIAZENE [Suspect]
     Active Substance: SILVER SULFADIAZINE
     Indication: TOXOPLASMOSIS
     Dosage: 500 MG, 4X/DAY
     Dates: start: 20170317
  2. DARAPRIM [Suspect]
     Active Substance: PYRIMETHAMINE
     Indication: TOXOPLASMOSIS
     Dosage: 100 MG, 1X/DAY (4 TABLETS)
     Route: 048
     Dates: start: 20170317, end: 20170317
  3. DARAPRIM [Suspect]
     Active Substance: PYRIMETHAMINE
     Dosage: 25 MG, 4X/DAY
     Route: 048
     Dates: start: 20170318
  4. LEUCOVORIN. [Suspect]
     Active Substance: LEUCOVORIN
     Indication: TOXOPLASMOSIS
     Dosage: 10 MG, 1X/DAY (2 TABLETS)
     Dates: start: 20170317

REACTIONS (3)
  - Product use in unapproved indication [Unknown]
  - Nausea [Not Recovered/Not Resolved]
  - Vomiting [Unknown]

NARRATIVE: CASE EVENT DATE: 20170318
